FAERS Safety Report 24627034 (Version 1)
Quarter: 2024Q4

REPORT INFORMATION
  Report Type: Spontaneous
  Country: JP (occurrence: None)
  Receive Date: 20241115
  Receipt Date: 20241115
  Transmission Date: 20250114
  Serious: Yes (Other)
  Sender: HARMAN FINOCHEM
  Company Number: JP-Harman-000077

PATIENT
  Sex: Female

DRUGS (2)
  1. BISOPROLOL FUMARATE [Suspect]
     Active Substance: BISOPROLOL FUMARATE
     Indication: Product used for unknown indication
  2. FLECAINIDE [Suspect]
     Active Substance: FLECAINIDE
     Indication: Product used for unknown indication

REACTIONS (3)
  - Atrioventricular block first degree [Recovered/Resolved]
  - Foetal exposure during pregnancy [Unknown]
  - Foetal arrhythmia [Recovered/Resolved]
